FAERS Safety Report 16849706 (Version 5)
Quarter: 2019Q4

REPORT INFORMATION
  Report Type: Spontaneous
  Country: JP (occurrence: JP)
  Receive Date: 20190925
  Receipt Date: 20191101
  Transmission Date: 20200122
  Serious: Yes (Hospitalization, Other)
  Sender: FDA-Public Use
  Company Number: JP-GLAXOSMITHKLINE-JP2019JPN159475

PATIENT
  Age: 84 Year
  Sex: Female
  Weight: 42 kg

DRUGS (31)
  1. LASIX [Concomitant]
     Active Substance: FUROSEMIDE
     Dosage: 20 MG, QD(AFTER BREAKFAST)
     Dates: end: 20190901
  2. MEPOLIZUMAB [Suspect]
     Active Substance: MEPOLIZUMAB
     Indication: ASTHMA
     Dosage: 100 MG, QD
     Route: 058
     Dates: start: 20190827, end: 20190827
  3. ZYRTEC [Concomitant]
     Active Substance: CETIRIZINE HYDROCHLORIDE
     Dosage: 10 MG, QD(BEFORE BEDTIME)
     Route: 048
     Dates: end: 20190830
  4. MAGMITT TABLET [Concomitant]
     Dosage: 330 MG, BID(AFTER BREASFAST AND DINNER)
  5. ALDACTONE-A TABLETS [Concomitant]
     Dosage: 25 MG, QD(AFTER BREAKFAST)
  6. ISOTONIC SODIUM CHLORIDE SOLUTION [Concomitant]
     Active Substance: SODIUM CHLORIDE
     Dosage: 15.5 ML, BID
     Dates: end: 20190829
  7. BROMHEXINE HYDROCHLORIDE INHALATION [Concomitant]
     Dosage: 2.5 ML, BID
     Dates: end: 20190829
  8. MEPOLIZUMAB [Suspect]
     Active Substance: MEPOLIZUMAB
     Dosage: UNK
     Route: 058
     Dates: start: 20191015, end: 20191015
  9. RELVAR ELLIPTA [Suspect]
     Active Substance: FLUTICASONE FUROATE\VILANTEROL TRIFENATATE
     Dosage: 200 ?G, QD
     Route: 055
     Dates: start: 20190710
  10. ZYRTEC [Concomitant]
     Active Substance: CETIRIZINE HYDROCHLORIDE
     Dosage: 10 MG, QD(BEFORE BEDTIME)
     Route: 048
     Dates: start: 20190902
  11. BERIZYM (JAPAN) [Concomitant]
     Dosage: 1 DF, TID(AFTER EVERY MEAL)
  12. MUCOSTA TABLETS [Concomitant]
     Dosage: 100 MG, TID(AFTER EVERY MEAL)
  13. WARFARIN (JAPANESE TRADENAME) [Concomitant]
     Active Substance: WARFARIN POTASSIUM
     Dosage: 2 MG, QD(AFTER DINNER)
  14. LASIX [Concomitant]
     Active Substance: FUROSEMIDE
     Dosage: 20 MG, 1D
     Dates: start: 20190909
  15. BROMHEXINE HYDROCHLORIDE INHALATION [Concomitant]
     Dosage: 2 ML, BID
     Dates: start: 20190830, end: 20190906
  16. KIPRES TABLETS [Concomitant]
     Dosage: 10 MG, QD(AFTER DINNER)
  17. SPIRIVA RESPIMAT [Concomitant]
     Active Substance: TIOTROPIUM BROMIDE
     Dosage: UNK, QD
  18. SYMBICORT [Concomitant]
     Active Substance: BUDESONIDE\FORMOTEROL FUMARATE DIHYDRATE
     Dosage: UNK
  19. NEUROTROPIN TABLET (SEPARATED CONSITUENT FROM RABBIT SKIN TREATED WITH [Concomitant]
     Dosage: 2 DF, BID(AFTER BREAKFAST AND DINNER)
  20. METILDIGOXIN [Concomitant]
     Active Substance: METILDIGOXIN
     Dosage: 0.1 MG, QD(AFTER BREAKFAST)
  21. PREDONINE [Concomitant]
     Active Substance: PREDNISOLONE
     Dosage: 10-20 MG, PRN
  22. LASIX [Concomitant]
     Active Substance: FUROSEMIDE
     Dosage: 30 MG, 1D
     Dates: start: 20190918
  23. ISOTONIC SODIUM CHLORIDE SOLUTION [Concomitant]
     Active Substance: SODIUM CHLORIDE
     Dosage: 8 ML, BID
     Dates: start: 20190830, end: 20190906
  24. LOXONIN TAPE [Concomitant]
     Active Substance: LOXOPROFEN SODIUM DIHYDRATE
     Dosage: UNK, QD
  25. ZYRTEC [Concomitant]
     Active Substance: CETIRIZINE HYDROCHLORIDE
     Dosage: 20 MG, QD(BEFORE BEDTIME)
     Route: 048
     Dates: start: 20190831, end: 20190901
  26. ONEALFA TABLETS [Concomitant]
     Dosage: 0.5 ?G, QD(AFTER BREAKFAST)
  27. MUCOSOLVAN L TABLET [Concomitant]
     Dosage: 45 MG, QD(AFTER DINNER)
  28. AMLODIN OD TABLETS [Concomitant]
     Dosage: 5 MG, QD(AFTER BREAKFAST)
  29. LASIX [Concomitant]
     Active Substance: FUROSEMIDE
     Dosage: 20 MG (AFTER BREAKFAST), 10 MG(AFTER LUNCH)
     Dates: start: 20190902, end: 20190908
  30. INTAL [Concomitant]
     Active Substance: CROMOLYN SODIUM
     Dosage: 1 DF, BID
     Dates: end: 20190829
  31. AZUNOL GARGLE LIQUID [Concomitant]
     Dosage: UNK

REACTIONS (5)
  - Blood potassium decreased [Recovering/Resolving]
  - Oedema peripheral [Recovered/Resolved]
  - Cardiac failure chronic [Recovered/Resolved]
  - Pleural effusion [Recovered/Resolved]
  - Treatment noncompliance [Unknown]

NARRATIVE: CASE EVENT DATE: 20190831
